FAERS Safety Report 7535636-2 (Version None)
Quarter: 2011Q2

REPORT INFORMATION
  Report Type: 
  Country: None (occurrence: None)
  Receive Date: 20110602
  Receipt Date: 20101209
  Transmission Date: 20111010
  Serious: No
  Sender: FDA-Public Use
  Company Number: EUS-2010-01201

PATIENT
  Age: 15 Year
  Sex: Male

DRUGS (3)
  1. CONTRAST MEDIA (CONTRAST MEDIA) [Concomitant]
  2. QUADRAMET [Suspect]
     Indication: BONE SARCOMA
     Dosage: 37 TO 51.8 MBQ/KG (1.0-1.4 MCI/KG)
  3. 18F-FDG (FLUDEOXYGLUCOSE (18F)) [Concomitant]

REACTIONS (4)
  - NEOPLASM PROGRESSION [None]
  - PANCYTOPENIA [None]
  - BONE SARCOMA [None]
  - DRUG INEFFECTIVE [None]
